FAERS Safety Report 17404895 (Version 1)
Quarter: 2020Q1

REPORT INFORMATION
  Report Type: Report from Study
  Country: FI (occurrence: FI)
  Receive Date: 20200211
  Receipt Date: 20200211
  Transmission Date: 20200409
  Serious: Yes (Death, Life-Threatening, Hospitalization)
  Sender: FDA-Public Use
  Company Number: FI-BAXTER-2020BAX002597

PATIENT
  Age: 53 Year
  Sex: Male
  Weight: 103.6 kg

DRUGS (4)
  1. HOLOXAN INJEKTIO/INFUUSIOKUIVA-AINE, LIUOSTA VARTEN [Suspect]
     Active Substance: IFOSFAMIDE
     Indication: NON-HODGKIN^S LYMPHOMA
     Dosage: PRIOR THERAPY, ICE
     Route: 065
  2. FLUDARABINE [Suspect]
     Active Substance: FLUDARABINE PHOSPHATE
     Indication: NON-HODGKIN^S LYMPHOMA
     Dosage: INJECTION FOR INFUSION
     Route: 042
     Dates: start: 20181101, end: 20181103
  3. SENDOXAN 1000 MG INJEKTIOKUIVA-AINE, LIUOSTA VARTEN [Suspect]
     Active Substance: CYCLOPHOSPHAMIDE
     Dosage: INJECTION FOR INFUSION
     Route: 042
     Dates: start: 20181101, end: 20181103
  4. SENDOXAN 1000 MG INJEKTIOKUIVA-AINE, LIUOSTA VARTEN [Suspect]
     Active Substance: CYCLOPHOSPHAMIDE
     Indication: NON-HODGKIN^S LYMPHOMA
     Dosage: PRIOR THERAPY
     Route: 065

REACTIONS (5)
  - Haemophagocytic lymphohistiocytosis [Not Recovered/Not Resolved]
  - Delirium [Not Recovered/Not Resolved]
  - Neurotoxicity [Recovered/Resolved]
  - Cytokine release syndrome [Recovered/Resolved]
  - Candida sepsis [Fatal]

NARRATIVE: CASE EVENT DATE: 20181112
